FAERS Safety Report 7738881-6 (Version None)
Quarter: 2011Q3

REPORT INFORMATION
  Report Type: 
  Country: None (occurrence: None)
  Receive Date: 20110909
  Receipt Date: 20110830
  Transmission Date: 20111222
  Serious: Yes (Hospitalization)
  Sender: FDA-Public Use
  Company Number: US-BIOGENIDEC-2011BI024289

PATIENT
  Age: 58 Year
  Sex: Female

DRUGS (1)
  1. AVONEX [Suspect]
     Indication: MULTIPLE SCLEROSIS
     Route: 030
     Dates: start: 20090622

REACTIONS (5)
  - INTRACRANIAL ANEURYSM [None]
  - UPPER LIMB FRACTURE [None]
  - ANKLE FRACTURE [None]
  - FALL [None]
  - ROAD TRAFFIC ACCIDENT [None]
